FAERS Safety Report 24167165 (Version 4)
Quarter: 2024Q4

REPORT INFORMATION
  Report Type: Report from Study
  Country: US (occurrence: US)
  Receive Date: 20240802
  Receipt Date: 20241005
  Transmission Date: 20250115
  Serious: Yes (Hospitalization)
  Sender: ABBVIE
  Company Number: US-ABBVIE-5861067

PATIENT
  Age: 61 Year
  Sex: Male
  Weight: 66 kg

DRUGS (6)
  1. RINVOQ [Suspect]
     Active Substance: UPADACITINIB
     Indication: Product used for unknown indication
     Route: 048
     Dates: start: 202311
  2. RINVOQ [Suspect]
     Active Substance: UPADACITINIB
     Indication: Product used for unknown indication
     Route: 048
     Dates: start: 20240706, end: 20240720
  3. RINVOQ [Suspect]
     Active Substance: UPADACITINIB
     Indication: Product used for unknown indication
     Route: 048
     Dates: start: 20240720, end: 20240806
  4. RINVOQ [Suspect]
     Active Substance: UPADACITINIB
     Indication: Product used for unknown indication
     Route: 048
     Dates: start: 20240901
  5. XIFAXAN [Concomitant]
     Active Substance: RIFAXIMIN
     Indication: Product used for unknown indication
     Route: 048
     Dates: start: 20240101
  6. APRISO [Concomitant]
     Active Substance: MESALAMINE
     Indication: Product used for unknown indication
     Route: 048
     Dates: start: 20160511

REACTIONS (11)
  - Arthropod bite [Recovered/Resolved]
  - Infected bite [Recovered/Resolved]
  - Immunodeficiency [Recovered/Resolved]
  - White blood cell count increased [Recovered/Resolved]
  - Wound complication [Recovered/Resolved]
  - Skin burning sensation [Recovered/Resolved]
  - Skin warm [Recovered/Resolved]
  - Wound complication [Unknown]
  - Red blood cell count decreased [Unknown]
  - Neutrophil count increased [Unknown]
  - Monocyte count increased [Unknown]

NARRATIVE: CASE EVENT DATE: 20240721
